FAERS Safety Report 24711598 (Version 1)
Quarter: 2024Q4

REPORT INFORMATION
  Report Type: Spontaneous
  Country: US (occurrence: None)
  Receive Date: 20241207
  Receipt Date: 20241207
  Transmission Date: 20250115
  Serious: Yes (Hospitalization)
  Sender: Public
  Company Number: None

PATIENT
  Age: 47 Year
  Sex: Female

DRUGS (3)
  1. OPSUMIT [Suspect]
     Active Substance: MACITENTAN
     Indication: Pulmonary arterial hypertension
     Dosage: 10MG 1 TIME A DAY BY MOUTH
     Dates: start: 202008
  2. EPOROSTENOL [Concomitant]
  3. G-VELETRI [Concomitant]

REACTIONS (4)
  - Back pain [None]
  - Dyspnoea [None]
  - Chest pain [None]
  - Thrombosis in device [None]

NARRATIVE: CASE EVENT DATE: 20241121
